FAERS Safety Report 5672674-9 (Version None)
Quarter: 2008Q1

REPORT INFORMATION
  Report Type: 
  Country: None (occurrence: None)
  Receive Date: 20080319
  Receipt Date: 20070220
  Transmission Date: 20080703
  Serious: No
  Sender: FDA-Public Use
  Company Number: US-KINGPHARMUSA00001-K200700189

PATIENT

DRUGS (7)
  1. ALTACE [Suspect]
     Indication: RENAL FAILURE
     Dosage: UNK, QD
     Route: 048
     Dates: start: 20070201
  2. ALTACE [Suspect]
     Indication: PROTEIN TOTAL INCREASED
  3. NOVOLOG [Concomitant]
     Indication: DIABETES MELLITUS
  4. LIPITOR [Concomitant]
  5. ZETIA [Concomitant]
  6. FOLATE SODIUM [Concomitant]
  7. COZAAR [Concomitant]
     Dosage: 100 MG, UNK

REACTIONS (1)
  - HYPERHIDROSIS [None]
